FAERS Safety Report 12160047 (Version 3)
Quarter: 2016Q2

REPORT INFORMATION
  Report Type: Spontaneous
  Country: US (occurrence: US)
  Receive Date: 20160308
  Receipt Date: 20160608
  Transmission Date: 20160815
  Serious: No
  Sender: FDA-Public Use
  Company Number: US-ELI_LILLY_AND_COMPANY-US201602009442

PATIENT
  Age: 67 Year
  Sex: Male

DRUGS (6)
  1. CIALIS [Suspect]
     Active Substance: TADALAFIL
     Indication: BENIGN PROSTATIC HYPERPLASIA
     Dosage: 20 MG, PRN (WHILE ON THE CRUISE, ABOUT 6 WEEKS AGO): EVERY 3 OR 4 DAYS
     Route: 065
     Dates: start: 201604
  2. CIALIS [Suspect]
     Active Substance: TADALAFIL
     Dosage: 5 MG, QD
     Route: 065
     Dates: start: 20160505
  3. AMLODIPINE [Concomitant]
     Active Substance: AMLODIPINE BESYLATE
  4. CIALIS [Suspect]
     Active Substance: TADALAFIL
     Indication: ERECTILE DYSFUNCTION
     Dosage: 10 MG, PRN (WHILE ON THE CRUISE, ABOUT 6 WEEKS AGO): EVERY 3 OR 4 DAYS
     Route: 065
     Dates: start: 201604
  5. CLOPIDOGREL [Concomitant]
     Active Substance: CLOPIDOGREL BISULFATE
  6. FISH OIL                           /00492901/ [Concomitant]
     Active Substance: COD LIVER OIL

REACTIONS (4)
  - Prescription drug used without a prescription [Recovered/Resolved]
  - Anxiety [Unknown]
  - Stress [Unknown]
  - Drug effect incomplete [Unknown]

NARRATIVE: CASE EVENT DATE: 201604
